FAERS Safety Report 5320324-3 (Version None)
Quarter: 2007Q1

REPORT INFORMATION
  Report Type: 
  Country: None (occurrence: None)
  Receive Date: 20070215
  Receipt Date: 20060818
  Transmission Date: 20070707
  Serious: Yes (Life-Threatening)
  Sender: FDA-Public Use
  Company Number: MC200600572

PATIENT
  Age: 70 Year
  Sex: Female
  Weight: 86 kg

DRUGS (6)
  1. ANGIOMAX [Suspect]
     Indication: PERCUTANEOUS CORONARY INTERVENTION
     Dosage: SEE IMAGE
     Route: 040
     Dates: start: 20060818, end: 20060818
  2. ANGIOMAX [Suspect]
     Indication: PERCUTANEOUS CORONARY INTERVENTION
     Dosage: SEE IMAGE
     Route: 040
     Dates: start: 20060818, end: 20060818
  3. ASPIRIN [Concomitant]
  4. VERSED [Concomitant]
  5. FENTANYL [Concomitant]
  6. HEPARIN [Concomitant]

REACTIONS (1)
  - CORONARY ARTERY THROMBOSIS [None]
